FAERS Safety Report 8172753-0 (Version None)
Quarter: 2012Q1

REPORT INFORMATION
  Report Type: 
  Country: None (occurrence: None)
  Receive Date: 20120229
  Receipt Date: 20120221
  Transmission Date: 20120608
  Serious: Yes (Other)
  Sender: FDA-Public Use
  Company Number: FR-BAYER-2012-017660

PATIENT
  Age: 35 Year
  Sex: Female

DRUGS (1)
  1. MOXIFLOXACIN HCL [Suspect]
     Indication: LUNG INFECTION
     Dosage: 400 MG, UNK
     Route: 048
     Dates: start: 20120202, end: 20120204

REACTIONS (2)
  - INSOMNIA [None]
  - AGGRESSION [None]
